FAERS Safety Report 9825753 (Version 1)
Quarter: 2013Q4

REPORT INFORMATION
  Report Type: Spontaneous
  Country: US (occurrence: None)
  Receive Date: 20131028
  Receipt Date: 20131028
  Transmission Date: 20140711
  Serious: Yes (Other)
  Sender: FDA-Public Use
  Company Number: 2013US002245

PATIENT
  Age: 40 Year
  Sex: Female
  Weight: 101 kg

DRUGS (7)
  1. ICLUSIG [Suspect]
     Indication: CHRONIC MYELOID LEUKAEMIA
     Route: 048
  2. AMBIEN [Concomitant]
  3. BACLOFEN [Concomitant]
  4. CALCIUM PLUS VITAMIN D [Concomitant]
  5. COMPAZINE [Concomitant]
  6. ALBUTEROL [Concomitant]
  7. ZOFRAN [Concomitant]

REACTIONS (1)
  - Alopecia [None]
